FAERS Safety Report 16963597 (Version 2)
Quarter: 2019Q4

REPORT INFORMATION
  Report Type: Spontaneous
  Country: JP (occurrence: JP)
  Receive Date: 20191025
  Receipt Date: 20191113
  Transmission Date: 20200122
  Serious: Yes (Other)
  Sender: FDA-Public Use
  Company Number: JP-LUNDBECK-DKLU3006542

PATIENT
  Age: 60 Year
  Sex: Female

DRUGS (6)
  1. DOPS [Suspect]
     Active Substance: DROXIDOPA
     Indication: PARKINSON^S DISEASE
     Route: 048
  2. TRERIEF [Suspect]
     Active Substance: ZONISAMIDE
     Indication: PARKINSON^S DISEASE
     Route: 048
  3. CARBIDOPA MONOHYDRATE; LEVODOPA [Concomitant]
     Route: 065
  4. ROPINIROLE HYDROCHLORIDE. [Concomitant]
     Active Substance: ROPINIROLE HYDROCHLORIDE
     Indication: PRODUCT USED FOR UNKNOWN INDICATION
     Route: 065
  5. AMANTADINE HYDROCHLORIDE. [Concomitant]
     Active Substance: AMANTADINE HYDROCHLORIDE
     Indication: PRODUCT USED FOR UNKNOWN INDICATION
     Route: 065
  6. CARBIDOPA MONOHYDRATE; LEVODOPA [Concomitant]
     Indication: PRODUCT USED FOR UNKNOWN INDICATION
     Route: 065

REACTIONS (4)
  - Fall [Unknown]
  - Therapeutic response shortened [Unknown]
  - Dyskinesia [Unknown]
  - Disturbance in attention [Unknown]
